FAERS Safety Report 12922315 (Version 3)
Quarter: 2016Q4

REPORT INFORMATION
  Report Type: Spontaneous
  Country: US (occurrence: US)
  Receive Date: 20161108
  Receipt Date: 20161208
  Transmission Date: 20170207
  Serious: Yes (Hospitalization, Other)
  Sender: FDA-Public Use
  Company Number: US-SAOL THERAPEUTICS-2016SAO00985

PATIENT
  Age: 51 Year
  Sex: Male
  Weight: 69.39 kg

DRUGS (20)
  1. CRANBERRY CAPSULE [Concomitant]
     Active Substance: DIETARY SUPPLEMENT
  2. BACLOFEN. [Suspect]
     Active Substance: BACLOFEN
     Indication: MULTIPLE SCLEROSIS
  3. ALENDRONATE SODIUM. [Concomitant]
     Active Substance: ALENDRONATE SODIUM
  4. GABAPENTIN. [Concomitant]
     Active Substance: GABAPENTIN
  5. BACLOFEN. [Suspect]
     Active Substance: BACLOFEN
     Indication: MUSCLE SPASTICITY
     Dosage: 79.87 ?G, \DAY
     Route: 037
     Dates: start: 20031114
  6. ASCORBIC ACID. [Concomitant]
     Active Substance: ASCORBIC ACID
  7. TERAZOSIN [Concomitant]
     Active Substance: TERAZOSIN\TERAZOSIN HYDROCHLORIDE
  8. CALCIUM/VITAMIN D [Concomitant]
     Active Substance: CALCIUM\VITAMIN D
  9. KETOCONAZOLE CREAM [Concomitant]
     Active Substance: KETOCONAZOLE
  10. LISINOPRIL. [Concomitant]
     Active Substance: LISINOPRIL
  11. METHENAMINE [Concomitant]
     Active Substance: METHENAMINE
  12. OXYBUTYNIN [Concomitant]
     Active Substance: OXYBUTYNIN
  13. TRIAMCINOLONE CREAM [Concomitant]
     Active Substance: TRIAMCINOLONE
  14. MODAFINIL. [Concomitant]
     Active Substance: MODAFINIL
  15. SIMVASTATIN. [Concomitant]
     Active Substance: SIMVASTATIN
  16. CHOLECALCIFEROL [Concomitant]
     Active Substance: CHOLECALCIFEROL
  17. GLATIRAMER [Concomitant]
     Active Substance: GLATIRAMER
  18. MICONAZOLE. [Concomitant]
     Active Substance: MICONAZOLE
  19. MULTIVITAMIN [Concomitant]
     Active Substance: VITAMINS
  20. QUETIAPINE. [Concomitant]
     Active Substance: QUETIAPINE

REACTIONS (1)
  - Medical device site erosion [Recovered/Resolved]

NARRATIVE: CASE EVENT DATE: 20161029
